FAERS Safety Report 11919076 (Version 1)
Quarter: 2016Q1

REPORT INFORMATION
  Report Type: Spontaneous
  Country: US (occurrence: None)
  Receive Date: 20160114
  Receipt Date: 20160114
  Transmission Date: 20160526
  Serious: No
  Sender: FDA-Public Use
  Company Number: None

PATIENT
  Age: 73 Year
  Sex: Female
  Weight: 9.98 kg

DRUGS (3)
  1. VITAMIN D [Concomitant]
     Active Substance: CHOLECALCIFEROL
  2. VITAMIN B12 [Concomitant]
     Active Substance: CYANOCOBALAMIN
  3. PRAVASTATIN [Suspect]
     Active Substance: PRAVASTATIN\PRAVASTATIN SODIUM
     Indication: PRODUCT USED FOR UNKNOWN INDICATION
     Dosage: 1 PER DAY
     Route: 048
     Dates: start: 20151208, end: 20160107

REACTIONS (9)
  - Pain in extremity [None]
  - Headache [None]
  - Back pain [None]
  - Pain [None]
  - Fatigue [None]
  - Influenza like illness [None]
  - Blood cholesterol increased [None]
  - Eructation [None]
  - Nausea [None]

NARRATIVE: CASE EVENT DATE: 20151203
